FAERS Safety Report 25561856 (Version 1)
Quarter: 2025Q3

REPORT INFORMATION
  Report Type: Spontaneous
  Country: US (occurrence: US)
  Receive Date: 20250716
  Receipt Date: 20250716
  Transmission Date: 20251021
  Serious: Yes (Other)
  Sender: NOVO NORDISK
  Company Number: US-NOVOPROD-1284121

PATIENT
  Age: 46 Year
  Sex: Female

DRUGS (1)
  1. OZEMPIC [Suspect]
     Active Substance: SEMAGLUTIDE
     Indication: Product use in unapproved indication
     Dosage: 2 MG, QW
     Route: 058

REACTIONS (1)
  - Impaired gastric emptying [Recovered/Resolved]
